FAERS Safety Report 7632020-8 (Version None)
Quarter: 2011Q3

REPORT INFORMATION
  Report Type: 
  Country: None (occurrence: None)
  Receive Date: 20110725
  Receipt Date: 20100607
  Transmission Date: 20111222
  Serious: No
  Sender: FDA-Public Use
  Company Number: US-BRISTOL-MYERS SQUIBB COMPANY-15007404

PATIENT

DRUGS (1)
  1. COUMADIN [Suspect]
     Dosage: INCREASED TO 4MG AND 5MG EXP DATE:DEC2011;LOT# 8L41544B 5MG TABS: BATCH#7L31604A; EXP DATE:MAY2011

REACTIONS (1)
  - DRUG INEFFECTIVE [None]
